FAERS Safety Report 11158177 (Version 1)
Quarter: 2015Q2

REPORT INFORMATION
  Report Type: Spontaneous
  Country: US (occurrence: US)
  Receive Date: 20150603
  Receipt Date: 20150603
  Transmission Date: 20150821
  Serious: Yes (Hospitalization)
  Sender: FDA-Public Use
  Company Number: US-MYLANLABS-2015M1017443

PATIENT

DRUGS (1)
  1. METHOTREXATE [Suspect]
     Active Substance: METHOTREXATE
     Indication: PSORIASIS
     Route: 065

REACTIONS (7)
  - Inappropriate schedule of drug administration [Unknown]
  - Toxicity to various agents [Recovering/Resolving]
  - Fatigue [Recovering/Resolving]
  - Cholecystitis acute [Recovering/Resolving]
  - Stomatitis [Recovering/Resolving]
  - Bone marrow failure [Recovering/Resolving]
  - Transaminases increased [Recovering/Resolving]
